FAERS Safety Report 9928442 (Version 2)
Quarter: 2014Q1

REPORT INFORMATION
  Report Type: Spontaneous
  Country: DE (occurrence: None)
  Receive Date: 20140224
  Receipt Date: 20140228
  Transmission Date: 20141002
  Serious: Yes (Congenital Anomaly, Other)
  Sender: FDA-Public Use
  Company Number: AUR-APL-2014-01910

PATIENT
  Age: 1 Day
  Sex: Male
  Weight: 2.14 kg

DRUGS (2)
  1. ESCITALOPRAM [Suspect]
     Indication: DEPRESSION
     Route: 064
     Dates: start: 20120525, end: 20130207
  2. LAMOTRIGINE (LAMOTRIGINE) [Suspect]
     Indication: DEPRESSION
     Route: 064
     Dates: start: 20120525, end: 20130207

REACTIONS (6)
  - Foetal exposure during pregnancy [None]
  - Hypospadias [None]
  - Premature baby [None]
  - Motor developmental delay [None]
  - Hypotonia [None]
  - Small for dates baby [None]
